FAERS Safety Report 22524489 (Version 2)
Quarter: 2023Q2

REPORT INFORMATION
  Report Type: Spontaneous
  Country: US (occurrence: US)
  Receive Date: 20230606
  Receipt Date: 20230616
  Transmission Date: 20230722
  Serious: No
  Sender: FDA-Public Use
  Company Number: US-FreseniusKabi-FK202307802

PATIENT
  Age: 36 Year
  Sex: Female
  Weight: 81.6 kg

DRUGS (5)
  1. CEFOTETAN [Suspect]
     Active Substance: CEFOTETAN DISODIUM
     Indication: Prophylaxis
     Dosage: CEFOTETAN 2GM ADMINISTRATION?ONCE, TOTAL DOSE OF 2G
     Route: 042
     Dates: start: 20230528, end: 20230528
  2. CEFOTETAN [Suspect]
     Active Substance: CEFOTETAN DISODIUM
     Dosage: CEFOTETAN 2GM ADMINISTRATION?ONCE, TOTAL DOSE OF 2G
     Route: 042
     Dates: start: 20230528, end: 20230528
  3. TYLENOL [Concomitant]
     Active Substance: ACETAMINOPHEN
     Indication: Product used for unknown indication
  4. FENTANYL [Concomitant]
     Active Substance: FENTANYL
     Indication: Product used for unknown indication
  5. LACTATED RINGERS SOLUTION [Concomitant]
     Active Substance: CALCIUM CHLORIDE\POTASSIUM CHLORIDE\SODIUM CHLORIDE\SODIUM LACTATE
     Indication: Product used for unknown indication

REACTIONS (1)
  - Urticaria [Recovered/Resolved]

NARRATIVE: CASE EVENT DATE: 20230528
